FAERS Safety Report 5158549-2 (Version None)
Quarter: 2006Q4

REPORT INFORMATION
  Report Type: 
  Country: None (occurrence: None)
  Receive Date: 20061128
  Receipt Date: 20060623
  Transmission Date: 20070319
  Serious: Yes (Hospitalization)
  Sender: FDA-Public Use
  Company Number: DE-ROCHE-452858

PATIENT
  Age: 59 Year
  Sex: Female

DRUGS (3)
  1. PEGASYS [Suspect]
     Route: 065
  2. COPEGUS [Suspect]
     Route: 065
  3. LEVOTHYROXINE SODIUM [Concomitant]

REACTIONS (2)
  - HEADACHE [None]
  - OPTIC ATROPHY [None]
